FAERS Safety Report 15356191 (Version 2)
Quarter: 2018Q4

REPORT INFORMATION
  Report Type: Spontaneous
  Country: JP (occurrence: JP)
  Receive Date: 20180906
  Receipt Date: 20181114
  Transmission Date: 20190204
  Serious: Yes (Death, Hospitalization, Other)
  Sender: FDA-Public Use
  Company Number: JP-SHIRE-JP201832591AA

PATIENT
  Age: 65 Year
  Sex: Female

DRUGS (4)
  1. GAMMAGARD S/D [Suspect]
     Active Substance: HUMAN IMMUNOGLOBULIN G
     Indication: DERMATOMYOSITIS
     Dosage: UNK
     Route: 042
     Dates: end: 2016
  2. PREDNISOLONE. [Suspect]
     Active Substance: PREDNISOLONE
     Indication: DERMATOMYOSITIS
     Dosage: 60 MG/DAY
     Route: 065
     Dates: end: 201601
  3. CICLOSPORIN [Suspect]
     Active Substance: CYCLOSPORINE
     Indication: DERMATOMYOSITIS
     Dosage: UNK
     Route: 065
     Dates: end: 2016
  4. PREDNISOLONE. [Suspect]
     Active Substance: PREDNISOLONE
     Dosage: 70 MG/DAY
     Route: 065
     Dates: start: 201601, end: 2016

REACTIONS (8)
  - Haemolytic anaemia [Unknown]
  - Thrombotic microangiopathy [Unknown]
  - Renal impairment [Unknown]
  - Duodenal ulcer haemorrhage [Unknown]
  - Septic shock [Fatal]
  - Dermatomyositis [Unknown]
  - Myelodysplastic syndrome [Unknown]
  - Thrombocytopenia [Unknown]

NARRATIVE: CASE EVENT DATE: 201509
